FAERS Safety Report 7429504-4 (Version None)
Quarter: 2011Q2

REPORT INFORMATION
  Report Type: 
  Country: None (occurrence: None)
  Receive Date: 20110418
  Receipt Date: 20110418
  Transmission Date: 20111010
  Serious: No
  Sender: FDA-Public Use
  Company Number: None

PATIENT
  Sex: Male
  Weight: 68.0396 kg

DRUGS (1)
  1. LEVAQUIN [Suspect]
     Indication: PNEUMONIA PRIMARY ATYPICAL
     Dosage: 1 TABLET DAILY
     Dates: start: 20110323, end: 20110327

REACTIONS (3)
  - OEDEMA PERIPHERAL [None]
  - TENDONITIS [None]
  - GAIT DISTURBANCE [None]
